FAERS Safety Report 19905632 (Version 1)
Quarter: 2021Q4

REPORT INFORMATION
  Report Type: Report from Study
  Country: IN (occurrence: IN)
  Receive Date: 20211001
  Receipt Date: 20211001
  Transmission Date: 20220303
  Serious: Yes (Other)
  Sender: FDA-Public Use
  Company Number: IN-PFIZER INC-202101259744

PATIENT

DRUGS (2)
  1. PREGABALIN [Interacting]
     Active Substance: PREGABALIN
     Dosage: UNK
  2. MELPHALAN [Interacting]
     Active Substance: MELPHALAN
     Dosage: UNK

REACTIONS (2)
  - Myoclonus [Unknown]
  - Drug interaction [Unknown]
